FAERS Safety Report 26020145 (Version 2)
Quarter: 2025Q4

REPORT INFORMATION
  Report Type: Spontaneous
  Country: CN (occurrence: CN)
  Receive Date: 20251110
  Receipt Date: 20251111
  Transmission Date: 20260117
  Serious: Yes (Other)
  Sender: TENSHI KAIZEN PRIVATE LIMITED
  Company Number: None

PATIENT
  Age: 27 Year
  Sex: Female

DRUGS (6)
  1. LORATADINE [Suspect]
     Active Substance: LORATADINE
     Indication: Hypersensitivity
     Dosage: 10 MILLIGRAM
     Route: 048
  2. DEXAMETHASONE [Suspect]
     Active Substance: DEXAMETHASONE
     Indication: Hypersensitivity
     Dosage: 10 MILLIGRAM
     Route: 042
  3. EPINEPHRINE [Suspect]
     Active Substance: EPINEPHRINE
     Indication: Anaphylactic shock
     Dosage: 0.5 MILLIGRAM, BOLUS
     Route: 065
  4. EPINEPHRINE [Suspect]
     Active Substance: EPINEPHRINE
     Dosage: 0.15 MICROGRAM/KILOGRAM/MINUTE, INFUSION
     Route: 065
  5. CALCIUM GLUCONATE [Suspect]
     Active Substance: CALCIUM GLUCONATE
     Indication: Anaphylactic shock
     Dosage: 1 GRAM
     Route: 065
  6. POVIDONE-IODINE [Suspect]
     Active Substance: POVIDONE-IODINE
     Indication: Vulvovaginal candidiasis
     Dosage: 50 MILLILITER, VAGINAL LAVAGE
     Route: 067

REACTIONS (3)
  - Foetal distress syndrome [Unknown]
  - Drug ineffective [Unknown]
  - Maternal exposure during delivery [Unknown]
